FAERS Safety Report 4353447-6 (Version None)
Quarter: 2004Q2

REPORT INFORMATION
  Report Type: 
  Country: None (occurrence: None)
  Receive Date: 20040430
  Receipt Date: 20040422
  Transmission Date: 20050107
  Serious: Yes (Death)
  Sender: FDA-Public Use
  Company Number: US-JNJFOC-20040405105

PATIENT
  Age: 76 Year
  Sex: Female

DRUGS (2)
  1. DURAGESIC [Suspect]
     Indication: CANCER PAIN
     Dosage: 50 UG/HR,  1 IN 72 HOUR, TRANSDERMAL
     Route: 062
     Dates: start: 20040213, end: 20040218
  2. XANAX [Concomitant]

REACTIONS (1)
  - LETHARGY [None]
